FAERS Safety Report 8370908-3 (Version None)
Quarter: 2012Q2

REPORT INFORMATION
  Report Type: 
  Country: None (occurrence: None)
  Receive Date: 20120518
  Receipt Date: 20120516
  Transmission Date: 20120825
  Serious: Yes (Life-Threatening, Other)
  Sender: FDA-Public Use
  Company Number: US-BAYER-2012-048653

PATIENT
  Age: 53 Year
  Sex: Female

DRUGS (1)
  1. ULTRAVIST 150 [Suspect]
     Indication: COMPUTERISED TOMOGRAM ABDOMEN
     Dosage: 80 ML, ONCE
     Dates: start: 20120515, end: 20120515

REACTIONS (2)
  - TREMOR [None]
  - RASH [None]
